FAERS Safety Report 20416517 (Version 1)
Quarter: 2022Q1

REPORT INFORMATION
  Report Type: Spontaneous
  Country: US (occurrence: None)
  Receive Date: 20220201
  Receipt Date: 20220201
  Transmission Date: 20220423
  Serious: No
  Sender: FDA-Public Use
  Company Number: None

PATIENT
  Age: 52 Year
  Sex: Female
  Weight: 58.5 kg

DRUGS (5)
  1. VALACYCLOVIR [Suspect]
     Active Substance: VALACYCLOVIR HYDROCHLORIDE
     Indication: Herpes zoster
     Dosage: OTHER QUANTITY : 1 TABLET(S);?FREQUENCY : EVERY 8 HOURS;?
     Route: 048
     Dates: start: 20220127, end: 20220128
  2. UNSPECIFIED INGREDIENT [Concomitant]
     Active Substance: UNSPECIFIED INGREDIENT
  3. TESTOSTERONE [Concomitant]
     Active Substance: TESTOSTERONE
  4. ALLEGRA [Concomitant]
     Active Substance: FEXOFENADINE HYDROCHLORIDE
  5. IBUPROFEN [Concomitant]
     Active Substance: IBUPROFEN

REACTIONS (3)
  - Headache [None]
  - Nausea [None]
  - Neck pain [None]

NARRATIVE: CASE EVENT DATE: 20220127
